FAERS Safety Report 5124622-8 (Version None)
Quarter: 2006Q4

REPORT INFORMATION
  Report Type: 
  Country: None (occurrence: None)
  Receive Date: 20061006
  Receipt Date: 20061006
  Transmission Date: 20070319
  Serious: Yes (Life-Threatening, Hospitalization)
  Sender: FDA-Public Use
  Company Number: None

PATIENT
  Sex: Female
  Weight: 50 kg

DRUGS (22)
  1. WARFARIN SODIUM [Suspect]
     Indication: EMBOLISM
     Dosage: 1 MG EVERY OTHER DAY PO
     Route: 048
  2. PROCRIT [Concomitant]
  3. TOPROL-XL [Concomitant]
  4. LASIX [Concomitant]
  5. MYCELEX [Concomitant]
  6. SURFAK [Concomitant]
  7. LORTAB [Concomitant]
  8. PREDNISONE TAB [Concomitant]
  9. CLONIDINE [Concomitant]
  10. FLUCONAZOLE [Concomitant]
  11. NEXIUM [Concomitant]
  12. PROGRAF [Concomitant]
  13. REGLAN [Concomitant]
  14. IRON [Concomitant]
  15. AMBIEN [Concomitant]
  16. GANCICLOVIR [Concomitant]
  17. SULFA DRUG [Concomitant]
  18. MEDROL [Concomitant]
  19. INSULIN [Concomitant]
  20. MIRALAX [Concomitant]
  21. PAXIL [Concomitant]
  22. LOPID [Concomitant]

REACTIONS (10)
  - ARTHRALGIA [None]
  - EXCORIATION [None]
  - FALL [None]
  - HAEMARTHROSIS [None]
  - HAEMORRHAGE [None]
  - INJECTION SITE HAEMORRHAGE [None]
  - INTERNATIONAL NORMALISED RATIO INCREASED [None]
  - JOINT INJURY [None]
  - JOINT SWELLING [None]
  - MENTAL STATUS CHANGES [None]
